FAERS Safety Report 14801312 (Version 3)
Quarter: 2018Q2

REPORT INFORMATION
  Report Type: Report from Study
  Country: CA (occurrence: CA)
  Receive Date: 20180424
  Receipt Date: 20180511
  Transmission Date: 20180711
  Serious: Yes (Hospitalization, Other)
  Sender: FDA-Public Use
  Company Number: PHHY2018CA043218

PATIENT
  Age: 76 Year
  Sex: Male
  Weight: 111.6 kg

DRUGS (12)
  1. AMLODIPINE [Concomitant]
     Active Substance: AMLODIPINE BESYLATE
     Indication: PRODUCT USED FOR UNKNOWN INDICATION
     Dosage: 10 MG, QD
     Route: 048
     Dates: start: 20151222
  2. ENTRESTO [Suspect]
     Active Substance: SACUBITRIL\VALSARTAN
     Dosage: 2 DF (SACUBITRIL 49 MG, VALSARTAN 51 MG), QD
     Route: 048
     Dates: start: 20170126, end: 20170216
  3. ATORVASTATINE [Concomitant]
     Active Substance: ATORVASTATIN
     Indication: PRODUCT USED FOR UNKNOWN INDICATION
     Dosage: 10 MG, QD
     Route: 048
     Dates: start: 20150615
  4. CLONIDINE. [Concomitant]
     Active Substance: CLONIDINE
     Indication: PRODUCT USED FOR UNKNOWN INDICATION
     Dosage: 0.1 MG, QD
     Route: 048
     Dates: start: 20150615
  5. ENTRESTO [Suspect]
     Active Substance: SACUBITRIL\VALSARTAN
     Dosage: 2 DF (SACUBITRIL 97 MG, VALSARTAN 103 MG), QD
     Route: 048
     Dates: start: 20180302
  6. FUROSEMIDE. [Concomitant]
     Active Substance: FUROSEMIDE
     Indication: DIURETIC THERAPY
     Dosage: 40 MG, QD
     Route: 048
     Dates: start: 20170130, end: 20180218
  7. ASPIRIN. [Concomitant]
     Active Substance: ASPIRIN
     Indication: PRODUCT USED FOR UNKNOWN INDICATION
     Dosage: 80 MG, QD
     Route: 048
     Dates: start: 20180223
  8. ENTRESTO [Suspect]
     Active Substance: SACUBITRIL\VALSARTAN
     Indication: CARDIAC FAILURE
     Dosage: 2 DF (SACUBITRIL 24 MG, VALSARTAN 26 MG), QD
     Route: 048
     Dates: start: 20161230, end: 20170126
  9. TERAZOSINE [Concomitant]
     Indication: PRODUCT USED FOR UNKNOWN INDICATION
     Dosage: 1 MG, QD
     Route: 048
     Dates: start: 20180219
  10. ENTRESTO [Suspect]
     Active Substance: SACUBITRIL\VALSARTAN
     Dosage: 2 DF (SACUBITRIL 97 MG, VALSARTAN 103 MG), QD
     Route: 048
     Dates: start: 20170216, end: 20180218
  11. BISOPROLOL [Concomitant]
     Active Substance: BISOPROLOL
     Indication: PRODUCT USED FOR UNKNOWN INDICATION
     Dosage: 3.75 MG, QD
     Route: 048
     Dates: start: 20151222
  12. GLYCERYL TRINITRATE [Concomitant]
     Active Substance: NITROGLYCERIN
     Indication: PRODUCT USED FOR UNKNOWN INDICATION
     Dosage: 0.4 MG, QD
     Route: 060
     Dates: start: 20151222

REACTIONS (20)
  - Rhabdomyolysis [Recovered/Resolved]
  - Muscle necrosis [Recovered/Resolved]
  - Sinus rhythm [Unknown]
  - Dizziness [Recovered/Resolved]
  - Confusional state [Unknown]
  - Acute kidney injury [Recovered/Resolved]
  - Sinus tachycardia [Unknown]
  - Blood creatinine increased [Unknown]
  - Atrial fibrillation [Recovered/Resolved]
  - Faeces hard [Unknown]
  - Hyperglycaemia [Recovered/Resolved]
  - Pneumonia [Recovered/Resolved]
  - Troponin I increased [Unknown]
  - Nasopharyngitis [Recovered/Resolved]
  - Dehydration [Unknown]
  - Influenza [Recovered/Resolved]
  - Loss of consciousness [Recovered/Resolved]
  - Blood creatine phosphokinase increased [Recovered/Resolved]
  - Blood glucose increased [Recovered/Resolved]
  - Tachypnoea [Unknown]

NARRATIVE: CASE EVENT DATE: 20171212
